FAERS Safety Report 16101941 (Version 1)
Quarter: 2019Q1

REPORT INFORMATION
  Report Type: Spontaneous
  Country: US (occurrence: US)
  Receive Date: 20190321
  Receipt Date: 20190321
  Transmission Date: 20190418
  Serious: No
  Sender: FDA-Public Use
  Company Number: US-BAUSCH-BL-2019-008136

PATIENT
  Age: 72 Year
  Sex: Male

DRUGS (3)
  1. ZIOPTAN [Concomitant]
     Active Substance: TAFLUPROST
     Indication: PRODUCT USED FOR UNKNOWN INDICATION
     Route: 047
  2. SYNTHROID [Concomitant]
     Active Substance: LEVOTHYROXINE SODIUM
     Indication: PRODUCT USED FOR UNKNOWN INDICATION
     Route: 048
  3. LUMIFY [Suspect]
     Active Substance: BRIMONIDINE TARTRATE
     Indication: OCULAR HYPERAEMIA
     Dosage: USED IN BOTH EYES
     Route: 047
     Dates: start: 201901, end: 201903

REACTIONS (1)
  - Drug ineffective [Unknown]

NARRATIVE: CASE EVENT DATE: 2019
